FAERS Safety Report 8873856 (Version 1)
Quarter: 2012Q4

REPORT INFORMATION
  Report Type: 
  Country: US (occurrence: US)
  Receive Date: 20121030
  Receipt Date: 20121030
  Transmission Date: 20130627
  Serious: Yes (Death, Other)
  Sender: FDA-Public Use
  Company Number: US-ARROW-2012-18332

PATIENT
  Age: 17 Year
  Sex: Female

DRUGS (5)
  1. PREDNISONE [Suspect]
     Indication: RENAL TRANSPLANT
     Dosage: UNK
     Route: 065
  2. MYCOPHENOLATE MOFETIL (UNKNOWN) [Suspect]
     Indication: RENAL TRANSPLANT
     Dosage: UNK mg, daily
     Route: 065
  3. TACROLIMUS (UNKNOWN) [Suspect]
     Indication: RENAL TRANSPLANT
     Dosage: UNK
     Route: 065
  4. SOLU-MEDROL [Suspect]
     Indication: RENAL TRANSPLANT
     Dosage: UNK
     Route: 065
  5. ANTITHYMOCYTE IMMUNOGLOBULIN [Suspect]
     Indication: RENAL TRANSPLANT
     Dosage: UNK
     Route: 065

REACTIONS (4)
  - Post transplant lymphoproliferative disorder [Fatal]
  - Central nervous system neoplasm [Recovered/Resolved]
  - Epstein-Barr virus test positive [Unknown]
  - Cytomegalovirus test [Unknown]
